FAERS Safety Report 24550739 (Version 1)
Quarter: 2024Q4

REPORT INFORMATION
  Report Type: Spontaneous
  Country: US (occurrence: None)
  Receive Date: 20241025
  Receipt Date: 20241025
  Transmission Date: 20250114
  Serious: Yes (Hospitalization)
  Sender: Public
  Company Number: None

PATIENT
  Sex: Female

DRUGS (2)
  1. TABRECTA [Suspect]
     Active Substance: CAPMATINIB
     Indication: Lung carcinoma cell type unspecified stage 0
     Dosage: 300MG  EVERY 12 HOURS ORAL?
     Route: 048
     Dates: start: 202408
  2. TAGRISSO [Concomitant]

REACTIONS (1)
  - Deep vein thrombosis [None]
